FAERS Safety Report 5373646-4 (Version None)
Quarter: 2007Q2

REPORT INFORMATION
  Report Type: 
  Country: None (occurrence: None)
  Receive Date: 20070628
  Receipt Date: 20070620
  Transmission Date: 20071010
  Serious: Yes (Hospitalization)
  Sender: FDA-Public Use
  Company Number: JP-ROCHE-503933

PATIENT
  Age: 56 Year
  Sex: Male

DRUGS (2)
  1. COPEGUS [Suspect]
     Route: 048
     Dates: start: 20070530, end: 20070610
  2. PEGASYS [Suspect]
     Route: 058
     Dates: start: 20070530, end: 20070606

REACTIONS (1)
  - ANEURYSM RUPTURED [None]
